FAERS Safety Report 6509124-6 (Version None)
Quarter: 2009Q4

REPORT INFORMATION
  Report Type: 
  Country: None (occurrence: None)
  Receive Date: 20091221
  Receipt Date: 20091215
  Transmission Date: 20100525
  Serious: Yes (Death)
  Sender: FDA-Public Use
  Company Number: GB-PFIZER INC-2009310835

PATIENT
  Age: 16 Year

DRUGS (6)
  1. SILDENAFIL CITRATE [Suspect]
     Indication: PULMONARY HYPERTENSION
     Dosage: 1 MG, 1X/HOUR
     Route: 042
     Dates: start: 20091130
  2. NORADRENALINE [Suspect]
     Dosage: 0.3 UG/KG, 1X/MINUTE
  3. DOBUTAMINE [Suspect]
     Dosage: 5.5 UG/KG, 1X/MINUTE
  4. MILRINONE [Suspect]
     Dosage: 0.4 UG/KG, 1X/MINUTE
  5. VASOPRESSIN AND ANALOGUES [Suspect]
     Dosage: 2.4 IU, 1X/HOUR
  6. ADRENALINE [Suspect]
     Dosage: 0.4 UG/KG, 1X/MINUTE

REACTIONS (1)
  - DEATH [None]
